FAERS Safety Report 18060923 (Version 4)
Quarter: 2020Q3

REPORT INFORMATION
  Report Type: Report from Study
  Country: None (occurrence: DE)
  Receive Date: 20200723
  Receipt Date: 20200909
  Transmission Date: 20201103
  Serious: Yes (Hospitalization, Other)
  Sender: FDA-Public Use
  Company Number: DE-ABBVIE-20K-062-3492643-00

PATIENT
  Sex: Male

DRUGS (2)
  1. DUODOPA [Suspect]
     Active Substance: CARBIDOPA\LEVODOPA
     Indication: PARKINSON^S DISEASE
     Dosage: MD 9.5 ML; CRD 4.3 ML/ H; ED 1.5 ML
     Route: 050
     Dates: start: 20200429, end: 2020
  2. DUODOPA [Suspect]
     Active Substance: CARBIDOPA\LEVODOPA
     Dosage: MD 9.5 ML; CRD 4.3 ML/ H; ED 1.5 ML
     Route: 050
     Dates: start: 2020

REACTIONS (4)
  - Dyspnoea [Unknown]
  - Parkinson^s disease [Not Recovered/Not Resolved]
  - Sepsis [Not Recovered/Not Resolved]
  - Catheter site haemorrhage [Unknown]

NARRATIVE: CASE EVENT DATE: 2020
